FAERS Safety Report 25984369 (Version 1)
Quarter: 2025Q4

REPORT INFORMATION
  Report Type: Spontaneous
  Country: CN (occurrence: CN)
  Receive Date: 20251031
  Receipt Date: 20251031
  Transmission Date: 20260118
  Serious: Yes (Life-Threatening, Other)
  Sender: BAYER HEALTHCARE LLC
  Company Number: CN-BAYER-2025A142797

PATIENT
  Sex: Male
  Weight: 3.36 kg

DRUGS (6)
  1. LORATADINE [Suspect]
     Active Substance: LORATADINE
     Indication: Hypersensitivity
     Dosage: 10 MG
     Route: 064
  2. POVIDONE-IODINE [Concomitant]
     Active Substance: POVIDONE-IODINE
     Dosage: 50 ML
     Route: 064
  3. DEXAMETHASONE [Concomitant]
     Active Substance: DEXAMETHASONE
     Indication: Hypersensitivity
     Dosage: 10 MG
     Route: 064
  4. EPINEPHRINE [Concomitant]
     Active Substance: EPINEPHRINE
     Dosage: 0.5 MG FOLLOWED BY 0.15 ?G/KG/MIN INFUSION
     Route: 064
  5. CALCIUM GLUCONATE [Concomitant]
     Active Substance: CALCIUM GLUCONATE
     Dosage: 1 G
     Route: 064
  6. OXYGEN [Concomitant]
     Active Substance: OXYGEN
     Dosage: 6 L, Q1MIN
     Route: 064

REACTIONS (5)
  - Foetal distress syndrome [None]
  - Neonatal asphyxia [Recovering/Resolving]
  - Foetal heart rate deceleration abnormality [None]
  - Apgar score abnormal [Recovering/Resolving]
  - Foetal exposure during pregnancy [None]
